FAERS Safety Report 19915566 (Version 1)
Quarter: 2021Q4

REPORT INFORMATION
  Report Type: Spontaneous
  Country: US (occurrence: US)
  Receive Date: 20211005
  Receipt Date: 20211005
  Transmission Date: 20220303
  Serious: No
  Sender: FDA-Public Use
  Company Number: US-CELGENE-USA-20210907165

PATIENT
  Age: 32 Year
  Sex: Male
  Weight: 99.88 kg

DRUGS (6)
  1. ZEPOSIA [Suspect]
     Active Substance: OZANIMOD HYDROCHLORIDE
     Indication: Multiple sclerosis relapse
     Dosage: .92 MILLIGRAM
     Route: 048
     Dates: start: 20210728
  2. VITAMIN B [Concomitant]
     Active Substance: VITAMIN B
     Indication: Product used for unknown indication
     Route: 065
  3. VITAMIN C [Concomitant]
     Active Substance: ASCORBIC ACID
     Indication: Product used for unknown indication
     Route: 065
  4. VITAMIN D [Concomitant]
     Active Substance: VITAMIN D NOS
     Indication: Product used for unknown indication
     Route: 065
  5. VITAMINS [Concomitant]
     Active Substance: VITAMINS
     Indication: Product used for unknown indication
     Route: 065
  6. HERBALS [Concomitant]
     Active Substance: HERBALS
     Indication: Product used for unknown indication
     Route: 065

REACTIONS (1)
  - SARS-CoV-2 test positive [Recovering/Resolving]

NARRATIVE: CASE EVENT DATE: 20210917
